FAERS Safety Report 5874751-6 (Version None)
Quarter: 2008Q3

REPORT INFORMATION
  Report Type: 
  Country: None (occurrence: None)
  Receive Date: 20080909
  Receipt Date: 20080709
  Transmission Date: 20090109
  Serious: No
  Sender: FDA-Public Use
  Company Number: US-BAYER-200828603NA

PATIENT
  Age: 30 Year
  Sex: Female
  Weight: 91 kg

DRUGS (1)
  1. MIRENA [Suspect]
     Indication: CONTRACEPTION
     Route: 015
     Dates: start: 20080401, end: 20080604

REACTIONS (7)
  - AMENORRHOEA [None]
  - DIZZINESS [None]
  - FATIGUE [None]
  - GENITAL HAEMORRHAGE [None]
  - HUNGER [None]
  - NAUSEA [None]
  - THIRST [None]
